FAERS Safety Report 7225913-7 (Version None)
Quarter: 2011Q1

REPORT INFORMATION
  Report Type: 
  Country: None (occurrence: None)
  Receive Date: 20110113
  Receipt Date: 20110107
  Transmission Date: 20110831
  Serious: Yes (Life-Threatening, Hospitalization, Other)
  Sender: FDA-Public Use
  Company Number: JP-PFIZER INC-2011006369

PATIENT
  Age: 15 Year
  Sex: Male

DRUGS (4)
  1. IFOSFAMIDE [Suspect]
     Indication: BONE SARCOMA
     Route: 042
  2. DOXORUBICIN HCL [Suspect]
     Indication: BONE SARCOMA
     Dosage: UNK
     Route: 042
     Dates: start: 20001226
  3. METHOTREXATE SODIUM [Suspect]
     Indication: BONE SARCOMA
     Dosage: UNK
     Dates: start: 20001226
  4. RANDA [Suspect]
     Indication: BONE SARCOMA
     Dosage: UNK
     Route: 042
     Dates: start: 20001226

REACTIONS (4)
  - LIVER DISORDER [None]
  - POSTOPERATIVE WOUND INFECTION [None]
  - SURGERY [None]
  - BONE MARROW FAILURE [None]
